FAERS Safety Report 10579388 (Version 1)
Quarter: 2014Q4

REPORT INFORMATION
  Report Type: Spontaneous
  Country: CH (occurrence: CH)
  Receive Date: 20141112
  Receipt Date: 20141112
  Transmission Date: 20150529
  Serious: Yes (Hospitalization)
  Sender: FDA-Public Use
  Company Number: CH-ASTRAZENECA-2014SE83789

PATIENT
  Age: 77 Year
  Sex: Male
  Weight: 78 kg

DRUGS (12)
  1. PRIMPERAN [Concomitant]
     Active Substance: METOCLOPRAMIDE HYDROCHLORIDE
     Route: 048
     Dates: start: 201410
  2. DILZEM [Interacting]
     Active Substance: DILTIAZEM
     Route: 048
     Dates: start: 20140915
  3. VALACICLOVIR [Concomitant]
     Active Substance: VALACYCLOVIR HYDROCHLORIDE
     Route: 048
  4. BELOC-ZOK COMP [Interacting]
     Active Substance: HYDROCHLOROTHIAZIDE\METOPROLOL SUCCINATE
     Route: 048
     Dates: start: 201410
  5. DIGOXIN. [Interacting]
     Active Substance: DIGOXIN
     Indication: ATRIAL FIBRILLATION
     Route: 048
     Dates: start: 201410, end: 20141009
  6. CORDARONE [Interacting]
     Active Substance: AMIODARONE HYDROCHLORIDE
     Route: 048
     Dates: start: 20141001, end: 20141013
  7. PARACETAMOL [Concomitant]
     Active Substance: ACETAMINOPHEN
  8. BELOC-ZOK COMP [Suspect]
     Active Substance: HYDROCHLOROTHIAZIDE\METOPROLOL SUCCINATE
     Route: 048
     Dates: start: 20140926, end: 20141010
  9. CORDARONE [Interacting]
     Active Substance: AMIODARONE HYDROCHLORIDE
     Route: 048
     Dates: end: 20140920
  10. VELCADE [Concomitant]
     Active Substance: BORTEZOMIB
  11. DIGOXIN. [Interacting]
     Active Substance: DIGOXIN
     Indication: ATRIAL FIBRILLATION
     Route: 048
     Dates: start: 20140919, end: 20140920
  12. CUBICIN [Concomitant]
     Active Substance: DAPTOMYCIN
     Route: 040
     Dates: start: 201410, end: 20141015

REACTIONS (17)
  - Eating disorder [Unknown]
  - Hyponatraemia [Unknown]
  - Drug prescribing error [Recovered/Resolved]
  - Toxicity to various agents [Recovering/Resolving]
  - Asthenia [Unknown]
  - Memory impairment [Unknown]
  - Visual impairment [Unknown]
  - Dehydration [Unknown]
  - General physical health deterioration [Unknown]
  - Agitation [Unknown]
  - Acute kidney injury [Recovering/Resolving]
  - Cardioactive drug level increased [Unknown]
  - Confusional state [Not Recovered/Not Resolved]
  - Nausea [Unknown]
  - Bradycardia [Unknown]
  - Drug interaction [Unknown]
  - Decreased appetite [Unknown]

NARRATIVE: CASE EVENT DATE: 201410
